FAERS Safety Report 25336438 (Version 1)
Quarter: 2025Q2

REPORT INFORMATION
  Report Type: Spontaneous
  Country: CN (occurrence: CN)
  Receive Date: 20250520
  Receipt Date: 20250520
  Transmission Date: 20250717
  Serious: Yes (Hospitalization)
  Sender: BAYER HEALTHCARE PHARMACEUTICALS INC.
  Company Number: CN-BAYER-2025A067539

PATIENT
  Age: 75 Year
  Sex: Male

DRUGS (4)
  1. GLUCOBAY [Suspect]
     Active Substance: ACARBOSE
     Indication: Type 2 diabetes mellitus
     Dosage: 50 MG, TID
     Route: 048
     Dates: start: 20250514, end: 20250516
  2. Uslen [Concomitant]
     Dosage: 25 U, HS
     Route: 058
     Dates: end: 20250513
  3. Uslen [Concomitant]
     Dosage: 10 U, HS
     Route: 058
     Dates: start: 20250514
  4. METFORMIN [Concomitant]
     Active Substance: METFORMIN HYDROCHLORIDE
     Dosage: 0.5 G, TID, BEFORE MEAL
     Route: 048
     Dates: start: 20250514

REACTIONS (3)
  - Decreased appetite [Not Recovered/Not Resolved]
  - Nausea [Recovered/Resolved]
  - Weight decreased [None]

NARRATIVE: CASE EVENT DATE: 20250516
